FAERS Safety Report 9866347 (Version 1)
Quarter: 2014Q1

REPORT INFORMATION
  Report Type: Spontaneous
  Country: US (occurrence: US)
  Receive Date: 20140203
  Receipt Date: 20140203
  Transmission Date: 20141002
  Serious: No
  Sender: FDA-Public Use
  Company Number: US-ALLERGAN-1319580US

PATIENT
  Age: 72 Year
  Sex: Male

DRUGS (4)
  1. RESTASIS [Suspect]
     Indication: DRY EYE
     Dosage: 2 GTT, BID
     Route: 047
  2. SYSTANE [Concomitant]
     Indication: DRY EYE
     Dosage: UNK
  3. BLOOD PRESSURE MEDICINE NOS [Concomitant]
     Indication: HYPERTENSION
     Dosage: UNK
  4. MEDICINE FOR EMOTIONS NOS [Concomitant]
     Indication: EMOTIONAL DISORDER
     Dosage: UNK

REACTIONS (3)
  - Abnormal sensation in eye [Not Recovered/Not Resolved]
  - Incorrect dose administered [Unknown]
  - Scleral hyperaemia [Recovering/Resolving]
